FAERS Safety Report 4712390-0 (Version None)
Quarter: 2005Q3

REPORT INFORMATION
  Report Type: 
  Country: None (occurrence: None)
  Receive Date: 20050711
  Receipt Date: 20050630
  Transmission Date: 20060218
  Serious: Yes (Hospitalization)
  Sender: FDA-Public Use
  Company Number: 2005095809

PATIENT
  Age: 45 Year
  Sex: Male

DRUGS (2)
  1. NARDIL [Suspect]
     Indication: ILL-DEFINED DISORDER
     Dosage: 75 MG (15 MG, 5 IN 1 D), ORAL
     Route: 048
  2. ALCOHOL (ETHANOL) [Suspect]
     Indication: ILL-DEFINED DISORDER
     Dosage: UNKNOWN
     Route: 065

REACTIONS (2)
  - ALCOHOL USE [None]
  - MULTIPLE DRUG OVERDOSE [None]
